FAERS Safety Report 10658313 (Version 2)
Quarter: 2014Q4

REPORT INFORMATION
  Report Type: Spontaneous
  Country: US (occurrence: US)
  Receive Date: 20141217
  Receipt Date: 20141217
  Transmission Date: 20150529
  Serious: No
  Sender: FDA-Public Use
  Company Number: US-GLAXOSMITHKLINE-A1065982A

PATIENT

DRUGS (4)
  1. NORVASC [Concomitant]
     Active Substance: AMLODIPINE BESYLATE
  2. VOTRIENT [Suspect]
     Active Substance: PAZOPANIB HYDROCHLORIDE
     Indication: PRODUCT USED FOR UNKNOWN INDICATION
     Dosage: 200 MG TABLETS, UNKNOWN DOSINGFU: 200MG AT 800MG DAILY
     Route: 065
     Dates: start: 20140228
  3. SYNTHROID TABLET [Concomitant]
     Indication: PRODUCT USED FOR UNKNOWN INDICATION
     Route: 065
  4. UNKNOWN [Concomitant]
     Active Substance: UNSPECIFIED INGREDIENT

REACTIONS (12)
  - Nausea [Not Recovered/Not Resolved]
  - Balance disorder [Recovering/Resolving]
  - Hypertension [Not Recovered/Not Resolved]
  - Oropharyngeal pain [Unknown]
  - Pharyngeal erythema [Not Recovered/Not Resolved]
  - Arrhythmia [Recovered/Resolved]
  - Headache [Unknown]
  - Hyponatraemia [Unknown]
  - Thermal burn [Not Recovered/Not Resolved]
  - Abdominal pain [Unknown]
  - Fatigue [Not Recovered/Not Resolved]
  - Abdominal pain upper [Recovering/Resolving]

NARRATIVE: CASE EVENT DATE: 20140326
